FAERS Safety Report 6818263-1 (Version None)
Quarter: 2010Q3

REPORT INFORMATION
  Report Type: 
  Country: None (occurrence: None)
  Receive Date: 20100706
  Receipt Date: 20070503
  Transmission Date: 20110219
  Serious: No
  Sender: FDA-Public Use
  Company Number: US-PFIZER INC-2007035842

PATIENT
  Age: 80 Year
  Sex: Female

DRUGS (15)
  1. ZITHROMAX [Suspect]
     Indication: PNEUMONIA
     Route: 042
     Dates: start: 20070503
  2. WARFARIN SODIUM [Concomitant]
  3. IRON [Concomitant]
  4. OMEPRAZOLE [Concomitant]
  5. INSULIN [Concomitant]
  6. LISINOPRIL [Concomitant]
  7. SIMVASTATIN [Concomitant]
  8. MULTI-VITAMINS [Concomitant]
  9. ADVAIR DISKUS 100/50 [Concomitant]
  10. AMLODIPINE [Concomitant]
  11. ZYRTEC [Concomitant]
  12. FUROSEMIDE [Concomitant]
  13. OXYBUTYNIN CHLORIDE [Concomitant]
  14. SOTALOL HCL [Concomitant]
  15. LEVOTHYROXINE SODIUM [Concomitant]

REACTIONS (1)
  - INCORRECT ROUTE OF DRUG ADMINISTRATION [None]
